FAERS Safety Report 6122129-2 (Version None)
Quarter: 2009Q1

REPORT INFORMATION
  Report Type: 
  Country: None (occurrence: None)
  Receive Date: 20090318
  Receipt Date: 20090312
  Transmission Date: 20090719
  Serious: Yes (Other)
  Sender: FDA-Public Use
  Company Number: US-JNJFOC-20090303476

PATIENT
  Age: 62 Year
  Sex: Female

DRUGS (4)
  1. LEVAQUIN [Suspect]
     Indication: DRUG USE FOR UNKNOWN INDICATION
     Route: 048
  2. ALTACE [Concomitant]
     Indication: MITRAL VALVE PROLAPSE
     Route: 065
  3. TOPROL-XL [Concomitant]
     Indication: CARDIAC DISORDER
     Route: 065
  4. XANAX [Concomitant]
     Route: 065

REACTIONS (5)
  - EAR DISCOMFORT [None]
  - ERYTHEMA [None]
  - HEART RATE INCREASED [None]
  - HYPERTENSION [None]
  - PARAESTHESIA [None]
